FAERS Safety Report 9316202 (Version 1)
Quarter: 2013Q2

REPORT INFORMATION
  Report Type: Spontaneous
  Country: US (occurrence: None)
  Receive Date: 20130522
  Receipt Date: 20130522
  Transmission Date: 20140414
  Serious: No
  Sender: FDA-Public Use
  Company Number: 2013P1006036

PATIENT
  Sex: Female

DRUGS (2)
  1. INFUMORPH [Suspect]
     Indication: POST LAMINECTOMY SYNDROME
     Route: 037
  2. INFUMORPH [Suspect]
     Indication: SPINAL PAIN
     Route: 037

REACTIONS (3)
  - Device kink [None]
  - Drug ineffective [None]
  - Pain [None]
